FAERS Safety Report 10280801 (Version 2)
Quarter: 2014Q3

REPORT INFORMATION
  Report Type: Spontaneous
  Country: US (occurrence: US)
  Receive Date: 20140707
  Receipt Date: 20140724
  Transmission Date: 20150326
  Serious: Yes (Death, Hospitalization)
  Sender: FDA-Public Use
  Company Number: US-BAXTER-2014BAX036156

PATIENT
  Sex: Male

DRUGS (2)
  1. DIANEAL PD-2 WITH DEXTROSE [Suspect]
     Active Substance: CALCIUM CHLORIDE\DEXTROSE MONOHYDRATE\MAGNESIUM CHLORIDE\SODIUM CHLORIDE\SODIUM LACTATE
     Indication: PERITONEAL DIALYSIS
     Route: 033
     Dates: end: 20140603
  2. DIANEAL PD-2 WITH DEXTROSE [Suspect]
     Active Substance: CALCIUM CHLORIDE\DEXTROSE MONOHYDRATE\MAGNESIUM CHLORIDE\SODIUM CHLORIDE\SODIUM LACTATE
     Indication: PERITONEAL DIALYSIS
     Route: 033
     Dates: end: 20140603

REACTIONS (4)
  - Azotaemia [Recovered/Resolved]
  - Multimorbidity [Recovering/Resolving]
  - Death [Fatal]
  - Atrial fibrillation [Recovering/Resolving]

NARRATIVE: CASE EVENT DATE: 20140523
